FAERS Safety Report 7293142-7 (Version None)
Quarter: 2011Q1

REPORT INFORMATION
  Report Type: 
  Country: None (occurrence: None)
  Receive Date: 20110215
  Receipt Date: 20110211
  Transmission Date: 20110831
  Serious: Yes (Other)
  Sender: FDA-Public Use
  Company Number: FR-ROCHE-759478

PATIENT
  Sex: Male

DRUGS (14)
  1. CORTANCYL [Concomitant]
  2. INIPOMP [Concomitant]
  3. AVLOCARDYL [Concomitant]
  4. METOJECT [Concomitant]
     Dates: start: 20050101
  5. CACIT [Concomitant]
     Dosage: CACIT D3
  6. PLAQUENIL [Concomitant]
  7. TOPALGIC [Concomitant]
  8. ENBREL [Concomitant]
     Dates: start: 20080901
  9. CRESTOR [Concomitant]
  10. ACETAMINOPHEN [Concomitant]
  11. ORENCIA [Concomitant]
  12. SPECIAFOLDINE [Concomitant]
  13. FOSAMAX [Concomitant]
  14. ROACTEMRA [Suspect]
     Indication: RHEUMATOID ARTHRITIS
     Dosage: FREQUENCY: 9 CYCLES
     Route: 042
     Dates: start: 20100331, end: 20101117

REACTIONS (1)
  - HEPATITIS [None]
